FAERS Safety Report 4870447-8 (Version None)
Quarter: 2006Q1

REPORT INFORMATION
  Report Type: 
  Country: None (occurrence: None)
  Receive Date: 20060103
  Receipt Date: 20050701
  Transmission Date: 20060701
  Serious: Yes (Hospitalization)
  Sender: FDA-Public Use
  Company Number: US-BRISTOL-MYERS SQUIBB COMPANY-13022488

PATIENT
  Sex: Male

DRUGS (2)
  1. TRAZODONE HCL [Suspect]
  2. ZOLOFT [Suspect]

REACTIONS (1)
  - PRIAPISM [None]
